FAERS Safety Report 13747882 (Version 3)
Quarter: 2017Q4

REPORT INFORMATION
  Report Type: Spontaneous
  Country: US (occurrence: US)
  Receive Date: 20170713
  Receipt Date: 20171003
  Transmission Date: 20180320
  Serious: No
  Sender: FDA-Public Use
  Company Number: US-SHIRE-US201713821

PATIENT
  Sex: Male

DRUGS (1)
  1. XIIDRA [Suspect]
     Active Substance: LIFITEGRAST
     Indication: PRODUCT USED FOR UNKNOWN INDICATION
     Dosage: 2 GTT, 2X/DAY:BID, USED 7 DAYS
     Route: 047

REACTIONS (4)
  - Instillation site irritation [Unknown]
  - Condition aggravated [Unknown]
  - Drug ineffective [Unknown]
  - Instillation site pain [Unknown]
